FAERS Safety Report 6975666-2 (Version None)
Quarter: 2010Q3

REPORT INFORMATION
  Report Type: 
  Country: None (occurrence: None)
  Receive Date: 20100910
  Receipt Date: 20090506
  Transmission Date: 20110219
  Serious: No
  Sender: FDA-Public Use
  Company Number: US-WYE-H08796209

PATIENT
  Sex: Male
  Weight: 74 kg

DRUGS (5)
  1. PRISTIQ [Suspect]
     Indication: DEPRESSION
     Route: 048
     Dates: start: 20090324
  2. AVAPRO [Concomitant]
  3. AMBIEN [Concomitant]
  4. ACIPHEX [Concomitant]
  5. SIMVASTATIN [Concomitant]

REACTIONS (3)
  - DRUG INEFFECTIVE [None]
  - UNEVALUABLE EVENT [None]
  - VISION BLURRED [None]
